FAERS Safety Report 5504805-5 (Version None)
Quarter: 2007Q4

REPORT INFORMATION
  Report Type: 
  Country: None (occurrence: None)
  Receive Date: 20071031
  Receipt Date: 20071031
  Transmission Date: 20080405
  Serious: No
  Sender: FDA-Public Use
  Company Number: None

PATIENT
  Sex: Female
  Weight: 70.3075 kg

DRUGS (2)
  1. PROAIR HFA [Suspect]
     Indication: ASTHMA
     Dates: start: 20070201, end: 20071001
  2. PROAIR HFA [Suspect]

REACTIONS (3)
  - DEVICE MALFUNCTION [None]
  - FEAR [None]
  - PHARMACEUTICAL PRODUCT COMPLAINT [None]
